FAERS Safety Report 5137083-X (Version None)
Quarter: 2006Q4

REPORT INFORMATION
  Report Type: 
  Country: None (occurrence: None)
  Receive Date: 20061030
  Receipt Date: 20061019
  Transmission Date: 20070319
  Serious: Yes (Other)
  Sender: FDA-Public Use
  Company Number: JP-AVENTIS-200613287JP

PATIENT
  Age: 89 Year
  Sex: Female

DRUGS (1)
  1. LASIX [Suspect]

REACTIONS (3)
  - DEAFNESS [None]
  - ECZEMA [None]
  - PEMPHIGOID [None]
